FAERS Safety Report 7774801-6 (Version None)
Quarter: 2011Q3

REPORT INFORMATION
  Report Type: 
  Country: None (occurrence: None)
  Receive Date: 20110920
  Receipt Date: 20110909
  Transmission Date: 20111222
  Serious: Yes (Other)
  Sender: FDA-Public Use
  Company Number: 2011SP042731

PATIENT
  Age: 15 Year
  Sex: Male

DRUGS (1)
  1. DULERA ORAL INHALATION [Suspect]
     Indication: ASTHMA
     Dosage: 2 DF;BID;INH
     Route: 055
     Dates: start: 20110901, end: 20110905

REACTIONS (3)
  - AGGRESSION [None]
  - HEADACHE [None]
  - COUGH [None]
